FAERS Safety Report 4571937-8 (Version None)
Quarter: 2005Q1

REPORT INFORMATION
  Report Type: 
  Country: None (occurrence: None)
  Receive Date: 20050202
  Receipt Date: 20050121
  Transmission Date: 20050727
  Serious: Yes (Other)
  Sender: FDA-Public Use
  Company Number: 2005-00261

PATIENT
  Age: 64 Year
  Sex: Male
  Weight: 95.2 kg

DRUGS (8)
  1. DOXYCYCLINE HYCLATE [Suspect]
     Indication: INFECTION
     Dosage: 1 TABLET, BID, ORAL
     Route: 048
     Dates: start: 20050120, end: 20050121
  2. TEGRETOL [Concomitant]
  3. GLIPIZIDE [Concomitant]
  4. MELLAVIL [Concomitant]
  5. COMBIVENT (SALBUTAMOL SULFATE, IPRATROIPIUM BROMIDE) [Concomitant]
  6. ALBUTEROL [Concomitant]
  7. MULTIVITAMINS (PANTHENOL, NICOTINAMIDE, RIBOFLAVIN, RETINOL, THIAMINE [Concomitant]
  8. ROBITUSSIN ^ROBINS^ [Concomitant]

REACTIONS (5)
  - ANTICONVULSANT DRUG LEVEL DECREASED [None]
  - CONVULSION [None]
  - DRUG INTERACTION INHIBITION [None]
  - GRAND MAL CONVULSION [None]
  - LOSS OF CONSCIOUSNESS [None]
